FAERS Safety Report 11821955 (Version 4)
Quarter: 2016Q2

REPORT INFORMATION
  Report Type: Spontaneous
  Country: US (occurrence: US)
  Receive Date: 20151210
  Receipt Date: 20160601
  Transmission Date: 20160815
  Serious: No
  Sender: FDA-Public Use
  Company Number: US-JNJFOC-20150805837

PATIENT
  Sex: Male

DRUGS (3)
  1. IMBRUVICA [Suspect]
     Active Substance: IBRUTINIB
     Indication: CHRONIC LYMPHOCYTIC LEUKAEMIA
     Route: 048
     Dates: start: 20140627
  2. LISINOPRIL. [Concomitant]
     Active Substance: LISINOPRIL
     Route: 048
  3. HYDROCHLOROTHIAZIDE. [Concomitant]
     Active Substance: HYDROCHLOROTHIAZIDE

REACTIONS (10)
  - Rash pruritic [Unknown]
  - Muscular weakness [Unknown]
  - Fatigue [Unknown]
  - Hypertension [Unknown]
  - White blood cell count decreased [Unknown]
  - Skin lesion [Unknown]
  - Asthenia [Unknown]
  - Insomnia [Unknown]
  - Rash [Unknown]
  - Diarrhoea [Unknown]
